FAERS Safety Report 7426277-6 (Version None)
Quarter: 2011Q2

REPORT INFORMATION
  Report Type: 
  Country: None (occurrence: None)
  Receive Date: 20110420
  Receipt Date: 20110414
  Transmission Date: 20111010
  Serious: Yes (Hospitalization)
  Sender: FDA-Public Use
  Company Number: A0903089A

PATIENT
  Age: 49 Year
  Sex: Female

DRUGS (2)
  1. GLUCOVANCE [Suspect]
     Indication: PRODUCT USED FOR UNKNOWN INDICATION
     Route: 065
  2. AVANDIA [Suspect]
     Indication: DIABETES MELLITUS
     Dosage: 8MG PER DAY
     Route: 048
     Dates: start: 20040101, end: 20060101

REACTIONS (5)
  - VENTRICULAR HYPERTROPHY [None]
  - HYPOVENTILATION [None]
  - PULMONARY CONGESTION [None]
  - CARDIOMEGALY [None]
  - CARDIOVASCULAR DISORDER [None]
